FAERS Safety Report 8141528 (Version 2)
Quarter: 2016Q2

REPORT INFORMATION
  Report Type: Spontaneous
  Country: DK (occurrence: DK)
  Receive Date: 20110919
  Receipt Date: 20160412
  Transmission Date: 20160815
  Serious: Yes (Death, Other)
  Sender: FDA-Public Use
  Company Number: DK-ELI_LILLY_AND_COMPANY-DK201109003502

PATIENT
  Age: 39 Year
  Sex: Male
  Weight: 97 kg

DRUGS (6)
  1. ALOPAM [Concomitant]
     Active Substance: OXAZEPAM
     Indication: ANXIETY
     Dosage: UNK
     Dates: start: 2006, end: 201011
  2. MORPHINE [Concomitant]
     Active Substance: MORPHINE
     Indication: ANXIETY
  3. ZYPREXA [Suspect]
     Active Substance: OLANZAPINE
     Indication: DEPRESSION SUICIDAL
     Dosage: 20 MG, BID
     Route: 048
     Dates: start: 20101122
  4. LYRICA [Concomitant]
     Active Substance: PREGABALIN
     Indication: DEPRESSION
     Dosage: UNK
     Dates: start: 20101201
  5. VENLAFAXINE [Concomitant]
     Active Substance: VENLAFAXINE HYDROCHLORIDE
  6. DIAZEPAM. [Concomitant]
     Active Substance: DIAZEPAM
     Indication: ANXIETY

REACTIONS (9)
  - Overdose [Unknown]
  - Eosinophilic myocarditis [Fatal]
  - Arrhythmia [Fatal]
  - Emphysema [Fatal]
  - Bronchitis chronic [Fatal]
  - Toxicity to various agents [Fatal]
  - Off label use [Unknown]
  - Hypersensitivity [Unknown]
  - Cardiomegaly [Fatal]

NARRATIVE: CASE EVENT DATE: 20101122
